FAERS Safety Report 11033320 (Version 1)
Quarter: 2015Q2

REPORT INFORMATION
  Report Type: Spontaneous
  Country: US (occurrence: US)
  Receive Date: 20150415
  Receipt Date: 20150415
  Transmission Date: 20150821
  Serious: No
  Sender: FDA-Public Use
  Company Number: US-B.I. PHARMACEUTICALS,INC./RIDGEFIELD-2015-BI-17879BP

PATIENT
  Age: 68 Year
  Sex: Male
  Weight: 115 kg

DRUGS (6)
  1. PEPCID [Concomitant]
     Active Substance: FAMOTIDINE
     Indication: DYSPEPSIA
     Dosage: 20 MG
     Route: 048
     Dates: start: 2013
  2. OFEV [Suspect]
     Active Substance: NINTEDANIB
     Indication: IDIOPATHIC PULMONARY FIBROSIS
     Dosage: 300 MG
     Route: 048
     Dates: start: 20150223
  3. VITAMIN D3 [Concomitant]
     Active Substance: CHOLECALCIFEROL
     Indication: PRODUCT USED FOR UNKNOWN INDICATION
     Dosage: 1000 U
     Route: 048
     Dates: start: 2010
  4. GLUCOSIMINE CHONDROITIN [Concomitant]
     Indication: ARTHRALGIA
     Dosage: DOSE PER APPLICATION: 1500MG/1200MG; DAILY DOSE: 3000MG/2400MG
     Route: 048
     Dates: start: 2005
  5. BABY ASPIRIN [Concomitant]
     Active Substance: ASPIRIN
     Indication: PRODUCT USED FOR UNKNOWN INDICATION
     Dosage: 81 MG
     Route: 048
  6. MUSINEX [Concomitant]
     Indication: NASAL CONGESTION
     Dosage: 1200 MG
     Route: 048
     Dates: start: 201412

REACTIONS (4)
  - Therapeutic response unexpected [Not Recovered/Not Resolved]
  - Body height decreased [Not Recovered/Not Resolved]
  - Cough [Not Recovered/Not Resolved]
  - Gastric dilatation [Not Recovered/Not Resolved]

NARRATIVE: CASE EVENT DATE: 201503
